FAERS Safety Report 14082413 (Version 1)
Quarter: 2017Q4

REPORT INFORMATION
  Report Type: Spontaneous
  Country: FR (occurrence: FR)
  Receive Date: 20171013
  Receipt Date: 20171013
  Transmission Date: 20180321
  Serious: Yes (Other)
  Sender: FDA-Public Use
  Company Number: FR-MERCK KGAA-2029961

PATIENT
  Sex: Female

DRUGS (1)
  1. NOVOTHYROX [Suspect]
     Active Substance: LEVOTHYROXINE SODIUM
     Indication: PRODUCT USED FOR UNKNOWN INDICATION

REACTIONS (13)
  - Pulmonary oedema [Unknown]
  - Vision blurred [Unknown]
  - Hyperchlorhydria [Unknown]
  - Blood thyroid stimulating hormone increased [Unknown]
  - Hyperhidrosis [Unknown]
  - Angioedema [Unknown]
  - Suicidal ideation [Unknown]
  - Weight increased [Unknown]
  - Arthralgia [Unknown]
  - Vertigo [Unknown]
  - Peripheral swelling [Unknown]
  - Aphonia [Unknown]
  - Malaise [Unknown]

NARRATIVE: CASE EVENT DATE: 2017
